FAERS Safety Report 9197593 (Version 1)
Quarter: 2013Q1

REPORT INFORMATION
  Report Type: Spontaneous
  Country: GB (occurrence: GB)
  Receive Date: 20130328
  Receipt Date: 20130328
  Transmission Date: 20140127
  Serious: Yes (Other)
  Sender: FDA-Public Use
  Company Number: GB-GLAXOSMITHKLINE-B0878528A

PATIENT
  Age: 59 Year
  Sex: 0

DRUGS (3)
  1. PAZOPANIB [Suspect]
     Indication: RENAL CELL CARCINOMA
     Route: 065
  2. AMLODIPINE [Concomitant]
  3. ATENOLOL [Concomitant]

REACTIONS (9)
  - Pulmonary embolism [Unknown]
  - Diarrhoea [Unknown]
  - Hypertension [Unknown]
  - Drug ineffective [Unknown]
  - Cough [Unknown]
  - Disease progression [Unknown]
  - Lymphadenopathy [Unknown]
  - Alanine aminotransferase increased [Unknown]
  - Aspartate aminotransferase increased [Unknown]
